FAERS Safety Report 4330470-9 (Version None)
Quarter: 2004Q1

REPORT INFORMATION
  Report Type: 
  Country: None (occurrence: None)
  Receive Date: 20040330
  Receipt Date: 20040316
  Transmission Date: 20041129
  Serious: Yes (Death, Life-Threatening)
  Sender: FDA-Public Use
  Company Number: GB-JNJFOC-20040303564

PATIENT
  Age: 71 Year
  Sex: Male

DRUGS (7)
  1. REMICADE [Suspect]
     Indication: RHEUMATOID ARTHRITIS
     Dosage: 380 MG, INTRAVENOUS
     Route: 042
     Dates: start: 20020901
  2. PREDNISOLONE [Concomitant]
  3. BENDROFLUAZIDE (BENDROFLUMETHIAZIDE) [Concomitant]
  4. DIDRONEL [Concomitant]
  5. GLICLAZIDE (GLICLAZIDE) [Concomitant]
  6. RANITIDINE [Concomitant]
  7. METHOTREXATE [Concomitant]

REACTIONS (3)
  - ACUTE RESPIRATORY DISTRESS SYNDROME [None]
  - BACTERIAL SEPSIS [None]
  - NECROSIS [None]
